FAERS Safety Report 4386415-9 (Version None)
Quarter: 2004Q2

REPORT INFORMATION
  Report Type: 
  Country: None (occurrence: None)
  Receive Date: 20040623
  Receipt Date: 20040611
  Transmission Date: 20050107
  Serious: Yes (Hospitalization)
  Sender: FDA-Public Use
  Company Number: 207156

PATIENT
  Age: 58 Year
  Sex: Male

DRUGS (9)
  1. MABTHERA (RITUXIMAB) CONC FOR SOLUTION FOR INFUSION [Suspect]
     Indication: NON-HODGKIN'S LYMPHOMA
     Dosage: 750 MG, INTRAVENOUS
     Route: 042
     Dates: start: 20021106, end: 20030218
  2. NEULASTA [Suspect]
     Dosage: 6 MG, SINGLE ,SUBCUTANEOUS
     Route: 058
     Dates: start: 20030218
  3. VINCRISTINE [Suspect]
     Indication: NON-HODGKIN'S LYMPHOMA
     Dosage: 2 MG, INTRAVENOUS
     Route: 042
     Dates: start: 20021105, end: 20030107
  4. CYCLOPHOSPHAMIDE [Suspect]
     Indication: NON-HODGKIN'S LYMPHOMA
     Dates: start: 20001005, end: 20030217
  5. DOXORUBICIN HCL [Suspect]
     Indication: NON-HODGKIN'S LYMPHOMA
     Dosage: 100 MG, INTRAVENOUS
     Route: 042
     Dates: start: 20021105, end: 20030217
  6. PREDNISONE TAB [Concomitant]
  7. NAVOBAN (TROPISETRON HYDROCHLORIDE) [Concomitant]
  8. SIMVASTATIN [Concomitant]
  9. PROMETHEZINE HCL [Concomitant]

REACTIONS (3)
  - AGRANULOCYTOSIS [None]
  - CELLULITIS [None]
  - FEBRILE NEUTROPENIA [None]
